FAERS Safety Report 4708823-6 (Version None)
Quarter: 2005Q3

REPORT INFORMATION
  Report Type: 
  Country: None (occurrence: None)
  Receive Date: 20050707
  Receipt Date: 20050606
  Transmission Date: 20060218
  Serious: Yes (Life-Threatening, Hospitalization, Other)
  Sender: FDA-Public Use
  Company Number: JP-ABBOTT-05P-087-0302385-00

PATIENT
  Sex: Female

DRUGS (15)
  1. CEFZON CAPSULES [Suspect]
     Indication: BACTERIAL INFECTION
     Route: 048
     Dates: start: 20030701, end: 20030701
  2. FAMOTIDINE [Suspect]
     Indication: GASTRITIS
     Route: 048
     Dates: start: 20030613, end: 20030702
  3. ATORVASTATIN CALCIUM [Suspect]
     Indication: HYPERLIPIDAEMIA
     Route: 048
     Dates: start: 20030220, end: 20030704
  4. LISINOPRIL [Suspect]
     Indication: HYPERTENSION
     Route: 048
     Dates: start: 20030130, end: 20030703
  5. ALLOPURINOL [Suspect]
     Indication: HYPERURICAEMIA
     Dates: start: 20030624, end: 20030702
  6. CEFOTIAM HYDROCHLORIDE [Suspect]
     Indication: BACTERIAL INFECTION
     Route: 042
     Dates: start: 20030701, end: 20030701
  7. ACETAMINOPHEN [Suspect]
     Indication: HEADACHE
     Route: 048
     Dates: start: 20030625, end: 20030701
  8. WARFARIN POTASSIUM [Suspect]
     Indication: GLOMERULONEPHRITIS PROLIFERATIVE
     Route: 048
     Dates: start: 20030620, end: 20030623
  9. WARFARIN POTASSIUM [Suspect]
     Route: 048
     Dates: start: 20030624, end: 20030702
  10. DIPYRIDAMOLE [Concomitant]
     Indication: DRUG USE FOR UNKNOWN INDICATION
     Dates: start: 20030220, end: 20030607
  11. DILAZEP DIHYDROCHLORIDE [Concomitant]
     Indication: DRUG USE FOR UNKNOWN INDICATION
     Dates: start: 20030607, end: 20030704
  12. AMLODIPINE BESILATE [Concomitant]
     Indication: DRUG USE FOR UNKNOWN INDICATION
     Dates: start: 20030220, end: 20030703
  13. BROTIZOLAM [Concomitant]
     Indication: DRUG USE FOR UNKNOWN INDICATION
     Dates: start: 20030409, end: 20030704
  14. SELBEX [Concomitant]
     Indication: DRUG USE FOR UNKNOWN INDICATION
     Dates: start: 20030220
  15. ASPIRIN [Concomitant]
     Indication: DRUG USE FOR UNKNOWN INDICATION
     Dates: start: 20030220

REACTIONS (9)
  - BODY TEMPERATURE INCREASED [None]
  - CHILLS [None]
  - ERYTHEMA [None]
  - EYE DISORDER [None]
  - LIVER DISORDER [None]
  - PAIN [None]
  - RENAL FAILURE ACUTE [None]
  - SHOCK [None]
  - TOXIC EPIDERMAL NECROLYSIS [None]
